FAERS Safety Report 11973035 (Version 1)
Quarter: 2016Q1

REPORT INFORMATION
  Report Type: Spontaneous
  Country: US (occurrence: US)
  Receive Date: 20160128
  Receipt Date: 20160128
  Transmission Date: 20160526
  Serious: Yes (Death)
  Sender: FDA-Public Use
  Company Number: US-CELGENE-USA-2016013704

PATIENT
  Age: 79 Year
  Sex: Male
  Weight: 99.88 kg

DRUGS (3)
  1. AMOX TR-K CLAVULANATE [Concomitant]
     Indication: PRODUCT USED FOR UNKNOWN INDICATION
     Dosage: 875
     Route: 065
  2. M-CLEAR [Concomitant]
     Indication: PRODUCT USED FOR UNKNOWN INDICATION
     Route: 065
  3. POMALYST [Suspect]
     Active Substance: POMALIDOMIDE
     Indication: PLASMA CELL MYELOMA
     Dosage: 4 MILLIGRAM
     Route: 048
     Dates: start: 20150924, end: 2015

REACTIONS (1)
  - Thrombosis [Fatal]

NARRATIVE: CASE EVENT DATE: 20151130
